FAERS Safety Report 15800610 (Version 1)
Quarter: 2019Q1

REPORT INFORMATION
  Report Type: Spontaneous
  Country: CN (occurrence: CN)
  Receive Date: 20190108
  Receipt Date: 20190108
  Transmission Date: 20190417
  Serious: Yes (Life-Threatening, Other)
  Sender: FDA-Public Use
  Company Number: CN-BAXTER-2019BAX000032

PATIENT
  Age: 56 Year
  Sex: Male
  Weight: 54.5 kg

DRUGS (8)
  1. 0.9% SODIUM CHLORIDE INJECTION [Suspect]
     Active Substance: SODIUM CHLORIDE
     Dosage: SOLVENT FOR CIMETIDINE
     Route: 041
     Dates: start: 20181009
  2. CIMETIDINE [Suspect]
     Active Substance: CIMETIDINE
     Indication: ADVERSE EVENT
     Dosage: DILUENT IN NORMAL SALINE
     Route: 041
     Dates: start: 20181009
  3. SOLU-MEDROL [Suspect]
     Active Substance: METHYLPREDNISOLONE SODIUM SUCCINATE
     Indication: ADVERSE EVENT
     Route: 041
     Dates: start: 20181009
  4. PHENERGAN [Suspect]
     Active Substance: PROMETHAZINE HYDROCHLORIDE
     Indication: ADVERSE EVENT
     Route: 030
     Dates: start: 20181009
  5. LIFEIN [Suspect]
     Active Substance: INVESTIGATIONAL PRODUCT
     Indication: IMMUNE SYSTEM DISORDER
     Dosage: DILUTED IN SODIUM CHLORIDE INJECTION
     Route: 041
     Dates: start: 20181009, end: 20181009
  6. EPINEPHRINE. [Suspect]
     Active Substance: EPINEPHRINE
     Indication: ADVERSE EVENT
     Route: 058
     Dates: start: 20181009
  7. 0.9% SODIUM CHLORIDE INJECTION [Suspect]
     Active Substance: SODIUM CHLORIDE
     Indication: MEDICATION DILUTION
     Dosage: SOLVENT FOR LIFEIN
     Route: 041
     Dates: start: 20181009, end: 20181009
  8. DEXAMETHASONE. [Suspect]
     Active Substance: DEXAMETHASONE
     Indication: ADVERSE EVENT
     Dosage: INTRAVENOUS PUSH
     Route: 040
     Dates: start: 20181009

REACTIONS (8)
  - Vertigo [Unknown]
  - Chest discomfort [Recovered/Resolved]
  - Asthma [Unknown]
  - Cyanosis [Unknown]
  - Dyspnoea [Recovered/Resolved]
  - Pupillary light reflex tests abnormal [Unknown]
  - Laryngeal oedema [Recovered/Resolved]
  - Pruritus [Recovered/Resolved]

NARRATIVE: CASE EVENT DATE: 20181009
